FAERS Safety Report 5163876-9 (Version None)
Quarter: 2006Q4

REPORT INFORMATION
  Report Type: 
  Country: None (occurrence: None)
  Receive Date: 20061204
  Receipt Date: 20020524
  Transmission Date: 20070319
  Serious: Yes (Hospitalization, Other)
  Sender: FDA-Public Use
  Company Number: US-BRISTOL-MYERS SQUIBB COMPANY-11880648

PATIENT
  Age: 1 Month
  Sex: Male
  Weight: 3 kg

DRUGS (6)
  1. VIDEX [Suspect]
     Dosage: EXPOSURE DURING FIRST WEEKS OF GESTATION.
     Route: 048
  2. RETROVIR [Suspect]
     Dosage: EXPOSURE DURING FIRST WEEKS OF GESTATION AND FROM WEEK 31 OF GESTATION.
     Route: 042
     Dates: start: 19990802, end: 19990802
  3. RETROVIR [Suspect]
     Route: 048
  4. BACTRIM [Suspect]
     Dosage: EXPOSURE DURING GESTATION.
     Route: 064
  5. COLPOSEPTINE [Concomitant]
     Dosage: EXPOSURE DURING GESTATION.
     Route: 064
  6. VITAMINS [Concomitant]
     Dosage: EXPOSURE DURING GESTATION.
     Route: 064

REACTIONS (6)
  - ASPARTATE AMINOTRANSFERASE INCREASED [None]
  - BLOOD CREATINE PHOSPHOKINASE INCREASED [None]
  - BLOOD LACTIC ACID INCREASED [None]
  - NEUTROPENIA [None]
  - PREGNANCY [None]
  - THROMBOCYTHAEMIA [None]
